FAERS Safety Report 8250962-X (Version None)
Quarter: 2012Q2

REPORT INFORMATION
  Report Type: 
  Country: None (occurrence: None)
  Receive Date: 20120402
  Receipt Date: 20120327
  Transmission Date: 20120825
  Serious: Yes (Death, Hospitalization, Other)
  Sender: FDA-Public Use
  Company Number: US-BAYER-201011340NA

PATIENT
  Age: 77 Year
  Sex: Male
  Weight: 72.562 kg

DRUGS (44)
  1. LIDOCAINE [Concomitant]
     Dosage: 1 AMPOULE
     Dates: start: 20070307
  2. LISINOPRIL [Concomitant]
     Dosage: 10 MG, UNK
     Route: 048
     Dates: start: 20070305, end: 20070307
  3. DARVOCET-N 50 [Concomitant]
     Dosage: UNK
     Route: 048
     Dates: start: 20070305
  4. AMIODARONE HCL [Concomitant]
     Dosage: UNK
     Dates: start: 20070307
  5. DIFLUCAN [Concomitant]
  6. BETA BLOCKING AGENTS AND VASODILATORS [Concomitant]
  7. RANEXA [Concomitant]
     Dosage: 500 MG, UNK
     Route: 048
     Dates: end: 20070305
  8. LOPRESSOR [Concomitant]
     Dosage: 5 MG, UNK
     Route: 042
     Dates: start: 20070305
  9. ANCEF [Concomitant]
     Dosage: UNK
     Dates: start: 20070307
  10. VISIPAQUE [Concomitant]
     Indication: CATHETERISATION CARDIAC
     Dosage: 100 ML, UNK
     Dates: start: 20070226
  11. VERSED [Concomitant]
     Dosage: UNK
     Dates: start: 20070307
  12. PROTAMINE SULFATE [Concomitant]
     Dosage: UNK
     Dates: start: 20070307
  13. VANCOMYCIN [Concomitant]
  14. EPINEPHRINE [Concomitant]
     Dosage: 1 AMPULE TWICE
     Dates: start: 20070307
  15. XANAX [Concomitant]
     Dosage: 0.5 MG, UNK
     Route: 048
     Dates: start: 20070305
  16. LOVENOX [Concomitant]
     Dosage: 80 MG, UNK
     Route: 058
     Dates: start: 20070305
  17. LASIX [Concomitant]
     Dosage: UNK
  18. PANCURONIUM BROMIDE [Concomitant]
     Dosage: UNK
     Dates: start: 20070307
  19. MULTI-VITAMIN [Concomitant]
     Dosage: DAILY
     Route: 048
     Dates: end: 20070305
  20. DOPAMINE HCL [Concomitant]
     Dosage: DRIP AFTER RESURGERY
     Route: 041
  21. AMBIEN [Concomitant]
     Dosage: 5 MG, UNK
     Route: 048
     Dates: start: 20070305
  22. FRESH FROZEN PLASMA [Concomitant]
     Dosage: 4 U, UNK
     Dates: start: 20070307
  23. AMICAR [Concomitant]
     Dosage: UNK
     Dates: start: 20070307
  24. SUX [Concomitant]
     Dosage: UNK
     Dates: start: 20070307
  25. ACCUPRIL [Concomitant]
     Dosage: 10 MG, BID
     Route: 048
     Dates: end: 20070305
  26. METOPROLOL SUCCINATE [Concomitant]
     Dosage: 25MG IN THE EVENING
     Route: 048
     Dates: end: 20070305
  27. PRILOSEC [Concomitant]
     Dosage: 20 MG, HS
     Route: 048
     Dates: end: 20070305
  28. ROCEPHIN [Concomitant]
  29. EPINEPHRINE [Concomitant]
     Dosage: DRIP AFTER RESURGERY
     Route: 041
  30. SIMVASTATIN [Concomitant]
     Dosage: 10 MG, UNK
     Route: 048
     Dates: start: 20070305
  31. MANNITOL [Concomitant]
     Dosage: UNK
     Route: 042
     Dates: start: 20070305
  32. HEPARIN [Concomitant]
     Dosage: UNK
     Route: 042
     Dates: start: 20070305
  33. TRASYLOL [Suspect]
     Indication: CORONARY ARTERY BYPASS
     Dates: start: 20070307
  34. CIPROFLOXACIN HCL [Concomitant]
  35. ALIMENTARY TRACT AND METABOLISM [Concomitant]
  36. DARVON [Concomitant]
     Dosage: 65 MG, UNK
     Dates: end: 20070305
  37. AMLODIPINE [Concomitant]
     Dosage: 5 MG, UNK
     Route: 048
     Dates: start: 20070305
  38. RED BLOOD CELLS [Concomitant]
     Dosage: 8 U, UNK
     Route: 042
     Dates: start: 20070307
  39. PLATELETS [Concomitant]
     Dosage: 1 U, UNK
     Route: 042
     Dates: start: 20070307
  40. METOPROLOL SUCCINATE [Concomitant]
     Dosage: 50MG IN THE MORNING
     Route: 048
     Dates: end: 20070305
  41. GLUCOSAMINE [GLUCOSAMINE SULFATE] [Concomitant]
     Dosage: UNK UNK, QD
     Route: 048
     Dates: end: 20070305
  42. LOVASTATIN [Concomitant]
     Dosage: 20 MG, HS
     Route: 048
     Dates: end: 20070305
  43. IBUPROFEN (ADVIL) [Concomitant]
     Dosage: 200 MG, PRN
     Route: 048
     Dates: end: 20070305
  44. ANCEF [Concomitant]
     Dosage: 1 G, UNK
     Route: 042
     Dates: start: 20070305

REACTIONS (14)
  - ANXIETY [None]
  - DEATH [None]
  - RENAL IMPAIRMENT [None]
  - ORGAN FAILURE [None]
  - CEREBROVASCULAR ACCIDENT [None]
  - CARDIAC DISORDER [None]
  - DEPRESSION [None]
  - INJURY [None]
  - RENAL FAILURE [None]
  - UNEVALUABLE EVENT [None]
  - FEAR [None]
  - PAIN [None]
  - ANHEDONIA [None]
  - RENAL INJURY [None]
